FAERS Safety Report 12696141 (Version 2)
Quarter: 2016Q3

REPORT INFORMATION
  Report Type: Report from Study
  Country: US (occurrence: US)
  Receive Date: 20160829
  Receipt Date: 20160921
  Transmission Date: 20161109
  Serious: Yes (Other)
  Sender: FDA-Public Use
  Company Number: US-AMGEN-USASL2016111873

PATIENT
  Age: 59 Year
  Sex: Male

DRUGS (2)
  1. CELEBREX [Concomitant]
     Active Substance: CELECOXIB
     Dosage: UNK
  2. ENBREL [Suspect]
     Active Substance: ETANERCEPT
     Indication: PRODUCT USED FOR UNKNOWN INDICATION
     Dosage: UNK
     Route: 065
     Dates: start: 2008

REACTIONS (7)
  - Insomnia [Unknown]
  - Grip strength decreased [Unknown]
  - Blood pressure increased [Unknown]
  - Shoulder operation [Unknown]
  - Pain [Unknown]
  - Drug dose omission [Unknown]
  - Joint swelling [Unknown]

NARRATIVE: CASE EVENT DATE: 2013
